FAERS Safety Report 10215965 (Version 1)
Quarter: 2014Q2

REPORT INFORMATION
  Report Type: Spontaneous
  Country: US (occurrence: None)
  Receive Date: 20140602
  Receipt Date: 20140602
  Transmission Date: 20141212
  Serious: Yes (Hospitalization)
  Sender: FDA-Public Use
  Company Number: SYM-2014-21257

PATIENT
  Age: 33 Year
  Sex: Female

DRUGS (7)
  1. BUPROPION HYDROCHLORIDE [Suspect]
     Indication: PRODUCT USED FOR UNKNOWN INDICATION
  2. ETHANOL [Suspect]
     Indication: PRODUCT USED FOR UNKNOWN INDICATION
  3. GABAPENTIN (GABAPENTIN) [Concomitant]
  4. BENZODIAZEPINE DERIVATIVES (NULL) [Concomitant]
  5. AMFETAMINE (AMFETAMINE) [Concomitant]
  6. NICOTINE (NICOTINE) [Concomitant]
  7. DIAZEPAM (DIAZEPAM) [Concomitant]

REACTIONS (5)
  - Partial seizures [None]
  - Mental status changes [None]
  - Drug screen positive [None]
  - Hypotension [None]
  - Acute lung injury [None]
